FAERS Safety Report 8816512 (Version 1)
Quarter: 2012Q4

REPORT INFORMATION
  Report Type: Spontaneous
  Country: DK (occurrence: None)
  Receive Date: 20120927
  Receipt Date: 20120927
  Transmission Date: 20130627
  Serious: Yes (Other)
  Sender: FDA-Public Use
  Company Number: 2012MA011550

PATIENT
  Age: 66 Year
  Sex: Male

DRUGS (6)
  1. TRAMADOL HYDROCHLORIDE [Suspect]
     Indication: PAIN
     Route: 048
     Dates: start: 20120822, end: 20120829
  2. NEFOPAM [Concomitant]
  3. SIMVASTATIN [Concomitant]
  4. PARACETAMOL [Concomitant]
  5. RAMIPRIL [Concomitant]
  6. ATENOLOL [Concomitant]

REACTIONS (4)
  - Fall [None]
  - Confusional state [None]
  - Mental impairment [None]
  - Malaise [None]
